FAERS Safety Report 5702657-1 (Version None)
Quarter: 2008Q2

REPORT INFORMATION
  Report Type: 
  Country: None (occurrence: None)
  Receive Date: 20080411
  Receipt Date: 20071210
  Transmission Date: 20081010
  Serious: No
  Sender: FDA-Public Use
  Company Number: US-ASTRAZENECA-2007UW28173

PATIENT
  Age: 78 Year
  Sex: Female
  Weight: 61.2 kg

DRUGS (1)
  1. TENORMIN [Suspect]
     Route: 048
     Dates: start: 20071101

REACTIONS (1)
  - ALOPECIA [None]
